FAERS Safety Report 24186359 (Version 1)
Quarter: 2024Q3

REPORT INFORMATION
  Report Type: Report from Study
  Country: US (occurrence: None)
  Receive Date: 20240808
  Receipt Date: 20240808
  Transmission Date: 20241017
  Serious: Yes (Hospitalization)
  Sender: ASTRAZENECA
  Company Number: 2022A012895

PATIENT
  Age: 57 Year
  Sex: Female
  Weight: 73.5 kg

DRUGS (1)
  1. TAGRISSO [Suspect]
     Active Substance: OSIMERTINIB
     Indication: Bronchial carcinoma
     Route: 048
     Dates: start: 20200731

REACTIONS (2)
  - Renal disorder [Unknown]
  - Product dose omission issue [Unknown]
